FAERS Safety Report 5016949-5 (Version None)
Quarter: 2006Q2

REPORT INFORMATION
  Report Type: 
  Country: None (occurrence: None)
  Receive Date: 20060526
  Receipt Date: 20060511
  Transmission Date: 20061013
  Serious: Yes (Other)
  Sender: FDA-Public Use
  Company Number: US200605002457

PATIENT
  Age: 47 Year
  Sex: Male

DRUGS (3)
  1. HUMULIN 70/30 [Suspect]
     Dates: start: 19920101, end: 20051001
  2. HUMULIN R [Suspect]
  3. HUMULIN 50/50 [Suspect]
     Dosage: AS NEEDED,
     Dates: start: 20051001

REACTIONS (12)
  - BLOOD GLUCOSE INCREASED [None]
  - BURNING SENSATION [None]
  - FATIGUE [None]
  - FOOT AMPUTATION [None]
  - HAEMOGLOBIN DECREASED [None]
  - HYPERTENSION [None]
  - NEUROPATHY [None]
  - OEDEMA PERIPHERAL [None]
  - OSTEOMYELITIS [None]
  - PAIN IN EXTREMITY [None]
  - RENAL FAILURE [None]
  - SKIN LACERATION [None]
